FAERS Safety Report 6030729 (Version 16)
Quarter: 2013Q1

REPORT INFORMATION
  Report Type: Spontaneous
  Country: US (occurrence: US)
  Receive Date: 20060424
  Receipt Date: 20130121
  Transmission Date: 20140127
  Serious: Yes (Hospitalization, Other)
  Sender: FDA-Public Use
  Company Number: PHEH2006US04720

PATIENT
  Age: 54 None
  Sex: Male

DRUGS (68)
  1. AREDIA [Suspect]
     Dosage: 90 MG
     Route: 042
  2. ZOMETA [Suspect]
     Dosage: 4 MG
     Route: 042
  3. WARFARIN SODIUM [Concomitant]
     Dosage: 1 MG, QD
  4. CLARITIN-D [Concomitant]
  5. ALEVE                              /00256202/ [Concomitant]
     Dosage: 220 MG, QD
  6. CLINDAMYCIN [Concomitant]
     Dosage: 150 MG, Q6H
  7. CHLORHEXIDINE [Concomitant]
  8. MEGACE [Concomitant]
  9. LEXAPRO [Concomitant]
  10. REGLAN                                  /USA/ [Concomitant]
  11. PREVACID [Concomitant]
  12. LISINOPRIL [Concomitant]
  13. AMBIEN [Concomitant]
  14. AUGMENTIN                               /SCH/ [Concomitant]
  15. AMOXICILLIN [Concomitant]
  16. XANAX [Concomitant]
  17. HYDROCODONE [Concomitant]
  18. FENTANYL [Concomitant]
  19. PERCOCET [Concomitant]
  20. DECADRON                                /CAN/ [Concomitant]
  21. OXYCODONE [Concomitant]
  22. ZITHROMAX ^HEINRICH MACK^ [Concomitant]
  23. FAMVIR                                  /NET/ [Concomitant]
  24. NEURONTIN [Concomitant]
  25. ENDOCET [Concomitant]
  26. ZOVIRAX [Concomitant]
  27. DIFLUCAN [Concomitant]
  28. ZYRTEC [Concomitant]
  29. CIPRO [Concomitant]
  30. PRILOSEC [Concomitant]
  31. NEXIUM [Concomitant]
  32. MEDROL [Concomitant]
  33. ERYTHROMYCIN [Concomitant]
  34. ZELNORM                                 /CAN/ [Concomitant]
  35. PROTONIX ^PHARMACIA^ [Concomitant]
  36. VERSED [Concomitant]
  37. DEMEROL [Concomitant]
  38. ANAPROX [Concomitant]
  39. CATAPRES [Concomitant]
     Dosage: 1 DF, QW
     Route: 062
     Dates: start: 20090416
  40. NORVASC [Concomitant]
     Dosage: 5 MG, QD
     Route: 048
  41. CYMBALTA [Concomitant]
     Dosage: 30 MG, BID
     Route: 048
     Dates: start: 20090417
  42. ONDANSETRON [Concomitant]
     Dosage: 1 DF, PRN
     Route: 048
     Dates: start: 20090427
  43. KLOR-CON [Concomitant]
  44. PROMETHAZINE [Concomitant]
     Dosage: 25 MG, PRN
     Route: 048
     Dates: start: 20090430
  45. ALBUTEROL SULFATE [Concomitant]
     Dates: start: 20090520
  46. PREDNISONE [Concomitant]
  47. REVLIMID [Concomitant]
  48. REQUIP [Concomitant]
  49. LEVAQUIN [Concomitant]
  50. FLEXERIL [Concomitant]
  51. CYCLOBENZAPRINE [Concomitant]
  52. DIPRIVAN [Concomitant]
  53. NORVASC                                 /DEN/ [Concomitant]
  54. VALIUM [Concomitant]
  55. ZINACEF                                 /UNK/ [Concomitant]
  56. VANCOMYCIN [Concomitant]
  57. NORTRIPTYLINE [Concomitant]
  58. ACCUPRIL [Concomitant]
  59. ACYCLOVIR [Concomitant]
  60. AXID [Concomitant]
  61. LYRICA [Concomitant]
  62. LOMOTIL [Concomitant]
  63. TAXOL [Concomitant]
  64. CARBOPLATIN [Concomitant]
  65. ALPRAZOLAM [Concomitant]
  66. MORPHINE [Concomitant]
  67. LORCET [Concomitant]
  68. LIDOCAINE HYDROCHLORIDE [Concomitant]

REACTIONS (83)
  - Osteoarthritis [Unknown]
  - Gastric cancer recurrent [Unknown]
  - Oesophagitis ulcerative [Unknown]
  - Impaired gastric emptying [Unknown]
  - Gastric ulcer [Unknown]
  - Gastrooesophageal reflux disease [Unknown]
  - Obstruction gastric [Unknown]
  - Abdominal wound dehiscence [Unknown]
  - Decreased appetite [Unknown]
  - Depression [Unknown]
  - Peripheral nerve injury [Unknown]
  - Neuropathy peripheral [Unknown]
  - Lung neoplasm malignant [Unknown]
  - Osteonecrosis of jaw [Unknown]
  - Pain in jaw [Unknown]
  - Pain [Unknown]
  - Emotional distress [Unknown]
  - Mouth ulceration [Unknown]
  - Scrotal cyst [Unknown]
  - Anaemia [Unknown]
  - Arthralgia [Unknown]
  - Rash erythematous [Unknown]
  - Sinusitis [Unknown]
  - Constipation [Unknown]
  - Colon adenoma [Unknown]
  - Haemorrhoids [Unknown]
  - Chronic obstructive pulmonary disease [Unknown]
  - Respiratory failure [Unknown]
  - Bronchitis [Unknown]
  - Pancytopenia [Unknown]
  - Aortic aneurysm [Unknown]
  - Haemophilus bacteraemia [Unknown]
  - Gingival pain [Unknown]
  - Weight decreased [Unknown]
  - Fatigue [Unknown]
  - Rectal haemorrhage [Unknown]
  - Malaise [Unknown]
  - Abdominal pain [Unknown]
  - Muscular weakness [Unknown]
  - Paraesthesia [Unknown]
  - Intervertebral disc protrusion [Unknown]
  - Nausea [Unknown]
  - Vomiting [Unknown]
  - Thrombocytopenia [Unknown]
  - Neutropenia [Unknown]
  - Malnutrition [Unknown]
  - Hypoxia [Unknown]
  - Anxiety [Unknown]
  - Scoliosis [Unknown]
  - Acute leukaemia [Unknown]
  - Dysphagia [Unknown]
  - Helicobacter test positive [Unknown]
  - Injury [Unknown]
  - Laceration [Unknown]
  - Atelectasis [Recovering/Resolving]
  - Pneumonia [Unknown]
  - Sinus tachycardia [Unknown]
  - Lymphatic system neoplasm [Unknown]
  - Device related infection [Unknown]
  - Lymphoma [Unknown]
  - Altered state of consciousness [Unknown]
  - Foot fracture [Unknown]
  - Second primary malignancy [Unknown]
  - Hiatus hernia [Unknown]
  - Rhinorrhoea [Unknown]
  - Hypotension [Unknown]
  - Sinus bradycardia [Unknown]
  - Pancreatic carcinoma [Unknown]
  - Restless legs syndrome [Unknown]
  - Metastases to bone [Unknown]
  - Hypoaesthesia [Unknown]
  - Intervertebral disc space narrowing [Unknown]
  - Cervical spinal stenosis [Unknown]
  - Squamous cell carcinoma [Unknown]
  - Metastases to pleura [Unknown]
  - Pectus excavatum [Unknown]
  - Mass [Unknown]
  - Actinomycosis [Unknown]
  - Spinal osteoarthritis [Unknown]
  - Aortic arteriosclerosis [Unknown]
  - Pathological fracture [Unknown]
  - Lymphadenopathy [Unknown]
  - Cancer pain [Unknown]
